FAERS Safety Report 4607613-2 (Version None)
Quarter: 2005Q1

REPORT INFORMATION
  Report Type: 
  Country: None (occurrence: None)
  Receive Date: 20050314
  Receipt Date: 20050302
  Transmission Date: 20050727
  Serious: Yes (Hospitalization)
  Sender: FDA-Public Use
  Company Number: PHBS2005BR03164

PATIENT
  Age: 80 Year
  Sex: Male

DRUGS (5)
  1. EXELON [Suspect]
     Indication: DEMENTIA ALZHEIMER'S TYPE
     Dosage: 3 MG, BID
     Route: 048
  2. MEMANTINE HCL [Concomitant]
     Dosage: 10 MG, BID
     Route: 065
  3. GLUCOBAY [Concomitant]
     Indication: DIABETES MELLITUS
     Dosage: 100 MG, BID
     Route: 048
  4. METFORMIN HCL [Concomitant]
     Indication: DIABETES MELLITUS
     Dosage: 850 MG, TID
     Route: 048
  5. REPAGLINIDE [Concomitant]
     Indication: DIABETES MELLITUS
     Dosage: 1 MG, QD
     Route: 048

REACTIONS (5)
  - AGGRESSION [None]
  - AGITATION [None]
  - DELIRIUM [None]
  - HALLUCINATION [None]
  - HYPERGLYCAEMIA [None]
